FAERS Safety Report 6354762-7 (Version None)
Quarter: 2009Q3

REPORT INFORMATION
  Report Type: 
  Country: None (occurrence: None)
  Receive Date: 20090909
  Receipt Date: 20090827
  Transmission Date: 20100115
  Serious: Yes (Death, Other)
  Sender: FDA-Public Use
  Company Number: AUR-APL-2009-00523

PATIENT
  Age: 40 Year
  Sex: Female

DRUGS (4)
  1. RISPERIDONE [Suspect]
  2. IMIPRAMINE [Suspect]
  3. BENZTROPINE MESYLATE [Suspect]
  4. IBUPROFEN [Suspect]

REACTIONS (3)
  - ACUTE RESPIRATORY DISTRESS SYNDROME [None]
  - ELECTROCARDIOGRAM QT PROLONGED [None]
  - SEPSIS [None]
